FAERS Safety Report 5525696-2 (Version None)
Quarter: 2007Q4

REPORT INFORMATION
  Report Type: 
  Country: None (occurrence: None)
  Receive Date: 20071126
  Receipt Date: 20071114
  Transmission Date: 20080405
  Serious: Yes (Hospitalization)
  Sender: FDA-Public Use
  Company Number: US-AMGEN-US248430

PATIENT
  Sex: Male
  Weight: 84 kg

DRUGS (4)
  1. PROCRIT [Suspect]
     Indication: ANAEMIA
     Dates: start: 20071001
  2. LEVOTHYROXINE SODIUM [Concomitant]
  3. LASIX [Concomitant]
  4. AVODART [Concomitant]

REACTIONS (2)
  - PNEUMONIA [None]
  - SUNBURN [None]
